FAERS Safety Report 7790697-0 (Version None)
Quarter: 2011Q3

REPORT INFORMATION
  Report Type: 
  Country: None (occurrence: None)
  Receive Date: 20110930
  Receipt Date: 20110920
  Transmission Date: 20111222
  Serious: Yes (Hospitalization)
  Sender: FDA-Public Use
  Company Number: JP-ABBOTT-10P-087-0667096-00

PATIENT
  Sex: Female
  Weight: 51 kg

DRUGS (42)
  1. PENTASA [Concomitant]
     Indication: COLITIS ULCERATIVE
     Route: 048
     Dates: end: 20101020
  2. PREDNISOLONE [Concomitant]
     Dosage: DOSE TITRATION
     Route: 048
     Dates: start: 20100806, end: 20100820
  3. PREDNISOLONE [Concomitant]
     Dosage: DOSE TITRATION
     Route: 048
     Dates: start: 20100821, end: 20100906
  4. PREDNISOLONE [Concomitant]
     Route: 048
     Dates: start: 20091002, end: 20091015
  5. PREDNISOLONE [Concomitant]
     Route: 048
     Dates: start: 20091128, end: 20100414
  6. PREDNISOLONE [Concomitant]
     Route: 048
     Dates: start: 20100928
  7. LANSOPRAZOLE [Concomitant]
     Indication: PROPHYLAXIS AGAINST GASTROINTESTINAL ULCER
     Route: 048
     Dates: start: 20080804
  8. LORCAM [Concomitant]
     Route: 048
     Dates: start: 20100730, end: 20100804
  9. PREDNISOLONE [Concomitant]
     Route: 048
     Dates: start: 20090904, end: 20090917
  10. PREDNISOLONE [Concomitant]
     Route: 048
     Dates: start: 20100430, end: 20100708
  11. DIOVAN [Concomitant]
     Indication: HYPERTENSION
     Route: 048
     Dates: start: 20091128
  12. CEFDITOREN PIVOXIL [Concomitant]
     Indication: BURSITIS INFECTIVE
     Route: 048
     Dates: start: 20100812, end: 20100817
  13. CEFDITOREN PIVOXIL [Concomitant]
     Dates: start: 20100812, end: 20100817
  14. HUMIRA [Suspect]
     Indication: COLITIS ULCERATIVE
     Route: 058
     Dates: start: 20090710, end: 20090710
  15. HUMIRA [Suspect]
     Dosage: WEEK 2
     Route: 058
  16. PREDNISOLONE [Concomitant]
     Route: 048
     Dates: start: 20100709, end: 20100805
  17. DEPAS [Concomitant]
     Indication: INSOMNIA
     Route: 048
     Dates: start: 20080820
  18. HUMIRA [Suspect]
     Route: 058
     Dates: end: 20100121
  19. HUMIRA [Suspect]
     Route: 058
     Dates: start: 20100122, end: 20100205
  20. HUMIRA [Suspect]
     Dates: start: 20100319, end: 20100806
  21. PREDNISOLONE [Concomitant]
     Route: 048
     Dates: start: 20090918, end: 20091001
  22. PREDNISOLONE [Concomitant]
     Route: 048
     Dates: start: 20100709
  23. LORCAM [Concomitant]
     Indication: BURSITIS INFECTIVE
     Route: 048
     Dates: start: 20100812, end: 20100817
  24. PREDNISOLONE [Concomitant]
     Indication: COLITIS ULCERATIVE
     Dosage: DOSE TITRATION
     Route: 048
     Dates: start: 20090605, end: 20090917
  25. PREDNISOLONE [Concomitant]
     Route: 048
     Dates: start: 20091016, end: 20091029
  26. PREDNISOLONE [Concomitant]
     Route: 048
     Dates: start: 20100709, end: 20100805
  27. PREDNISOLONE [Concomitant]
     Route: 048
     Dates: start: 20100709, end: 20100805
  28. NORVASC [Concomitant]
     Indication: HYPERTENSION
     Route: 048
     Dates: start: 20100306
  29. CEFAZOLIN [Concomitant]
     Route: 042
     Dates: start: 20100730, end: 20100730
  30. LORCAM [Concomitant]
     Route: 048
     Dates: start: 20100812, end: 20100817
  31. PREDNISOLONE [Concomitant]
     Route: 048
     Dates: start: 20091030, end: 20091112
  32. PREDNISOLONE [Concomitant]
     Route: 048
     Dates: start: 20091113, end: 20091127
  33. PREDNISOLONE [Concomitant]
     Route: 048
     Dates: start: 20100914, end: 20100927
  34. JUVELA [Concomitant]
     Indication: HYPERKERATOSIS PALMARIS AND PLANTARIS
     Dosage: ADEQUATE DOSE
     Route: 062
     Dates: start: 20091030
  35. VOLTAREN [Concomitant]
     Indication: ARTHRALGIA
     Dosage: 1 SHEET
     Route: 062
     Dates: start: 20100305
  36. CEFAZOLIN [Concomitant]
     Route: 042
     Dates: start: 20100802, end: 20100802
  37. CEFDITOREN PIVOXIL [Concomitant]
     Route: 048
     Dates: start: 20100730, end: 20100804
  38. PREDNISOLONE [Concomitant]
     Route: 048
     Dates: start: 20100415, end: 20100429
  39. PREDNISOLONE [Concomitant]
     Route: 048
     Dates: start: 20100907, end: 20100913
  40. RINDERON VG [Concomitant]
     Indication: ECZEMA
     Dosage: ADEQUATE DOSE
     Route: 062
     Dates: start: 20091211, end: 20091224
  41. CEFAZOLIN [Concomitant]
     Indication: BURSITIS INFECTIVE
     Route: 042
     Dates: start: 20100807, end: 20100807
  42. HUMIRA [Suspect]
     Route: 058
     Dates: start: 20100218, end: 20100305

REACTIONS (1)
  - MALAISE [None]
